FAERS Safety Report 7323489-7 (Version None)
Quarter: 2011Q1

REPORT INFORMATION
  Report Type: 
  Country: None (occurrence: None)
  Receive Date: 20110301
  Receipt Date: 20110215
  Transmission Date: 20110831
  Serious: Yes (Other)
  Sender: FDA-Public Use
  Company Number: PHHY2011US12606

PATIENT
  Sex: Female

DRUGS (1)
  1. DEFERASIROX [Suspect]
     Indication: THALASSAEMIA BETA
     Dosage: 30 MG/KG/DAY

REACTIONS (6)
  - PROTEINURIA [None]
  - URINE PROTEIN/CREATININE RATIO INCREASED [None]
  - SERUM FERRITIN INCREASED [None]
  - HAEMATURIA [None]
  - BETA 2 MICROGLOBULIN INCREASED [None]
  - URINE CALCIUM/CREATININE RATIO INCREASED [None]
